FAERS Safety Report 16244375 (Version 1)
Quarter: 2019Q2

REPORT INFORMATION
  Report Type: Report from Study
  Country: US (occurrence: US)
  Receive Date: 20190426
  Receipt Date: 20190426
  Transmission Date: 20190711
  Serious: Yes (Other)
  Sender: FDA-Public Use
  Company Number: US-JNJFOC-20190436190

PATIENT
  Sex: Male

DRUGS (14)
  1. IMBRUVICA [Suspect]
     Active Substance: IBRUTINIB
     Indication: CHRONIC LYMPHOCYTIC LEUKAEMIA
     Route: 048
     Dates: start: 20181207
  2. DICLOFENAC [Concomitant]
     Active Substance: DICLOFENAC
  3. SIMVASTATIN. [Concomitant]
     Active Substance: SIMVASTATIN
  4. SUDAFED [Concomitant]
     Active Substance: PSEUDOEPHEDRINE HYDROCHLORIDE
  5. METOPROLOL. [Concomitant]
     Active Substance: METOPROLOL
  6. IMBRUVICA [Suspect]
     Active Substance: IBRUTINIB
     Indication: CHRONIC LYMPHOCYTIC LEUKAEMIA
     Route: 048
     Dates: start: 20180420, end: 20181206
  7. LATANOPROST. [Concomitant]
     Active Substance: LATANOPROST
  8. RANITIDINE. [Concomitant]
     Active Substance: RANITIDINE
  9. ALLOPURINOL. [Concomitant]
     Active Substance: ALLOPURINOL
  10. DONEPEZIL. [Concomitant]
     Active Substance: DONEPEZIL
  11. IMBRUVICA [Suspect]
     Active Substance: IBRUTINIB
     Indication: CHRONIC LYMPHOCYTIC LEUKAEMIA
     Route: 048
     Dates: start: 20160615, end: 20180419
  12. TIMOLOL. [Concomitant]
     Active Substance: TIMOLOL
  13. CALCIUM CARBONATE. [Concomitant]
     Active Substance: CALCIUM CARBONATE
  14. WARFARIN [Concomitant]
     Active Substance: WARFARIN

REACTIONS (2)
  - Cerebral haemorrhage [Unknown]
  - Spinal cord haemorrhage [Unknown]
